FAERS Safety Report 7910466-8 (Version None)
Quarter: 2011Q4

REPORT INFORMATION
  Report Type: 
  Country: None (occurrence: None)
  Receive Date: 20111111
  Receipt Date: 20111101
  Transmission Date: 20120403
  Serious: Yes (Hospitalization)
  Sender: FDA-Public Use
  Company Number: PHHY2011JP91636

PATIENT
  Age: 40 Year
  Sex: Male

DRUGS (2)
  1. SOMAVERT [Suspect]
     Indication: ACROMEGALY
     Dosage: 10 MG, TWICE WEEKLY
     Route: 058
     Dates: start: 20110301
  2. SANDOSTATIN LAR [Suspect]
     Indication: ACROMEGALY
     Dosage: 40 MG, QMO
     Route: 030
     Dates: start: 20100101, end: 20111013

REACTIONS (7)
  - ABDOMINAL PAIN [None]
  - CHOLECYSTITIS [None]
  - RENAL IMPAIRMENT [None]
  - INFLAMMATION [None]
  - GENERAL PHYSICAL HEALTH DETERIORATION [None]
  - OXYGEN CONSUMPTION DECREASED [None]
  - GALLBLADDER NECROSIS [None]
